FAERS Safety Report 6060380-0 (Version None)
Quarter: 2009Q1

REPORT INFORMATION
  Report Type: 
  Country: None (occurrence: None)
  Receive Date: 20090130
  Receipt Date: 20090130
  Transmission Date: 20090719
  Serious: Yes (Life-Threatening)
  Sender: FDA-Public Use
  Company Number: None

PATIENT
  Age: 13 Year
  Sex: Female
  Weight: 38.1022 kg

DRUGS (1)
  1. ACIPHEX [Suspect]
     Indication: GASTROOESOPHAGEAL REFLUX DISEASE
     Dosage: 20 MG 1/DAY PO
     Route: 048
     Dates: start: 20070101, end: 20080924

REACTIONS (14)
  - ANXIETY [None]
  - APATHY [None]
  - DEPRESSION [None]
  - DISTURBANCE IN ATTENTION [None]
  - FATIGUE [None]
  - FLATULENCE [None]
  - HEADACHE [None]
  - HYPOAESTHESIA [None]
  - NERVE INJURY [None]
  - PANIC ATTACK [None]
  - PARAESTHESIA [None]
  - PHOTOPHOBIA [None]
  - TENDONITIS [None]
  - VITAMIN B12 DEFICIENCY [None]
